FAERS Safety Report 13338639 (Version 3)
Quarter: 2019Q4

REPORT INFORMATION
  Report Type: Spontaneous
  Country: US (occurrence: US)
  Receive Date: 20170315
  Receipt Date: 20191202
  Transmission Date: 20200122
  Serious: Yes (Other)
  Sender: FDA-Public Use
  Company Number: US-PFIZER INC-2017113251

PATIENT
  Age: 65 Year
  Sex: Male

DRUGS (6)
  1. CIALIS [Suspect]
     Active Substance: TADALAFIL
     Indication: HYPERTENSION
  2. AVASTIN [Concomitant]
     Active Substance: BEVACIZUMAB
     Indication: BLOOD PRESSURE ABNORMAL
     Dosage: UNK
     Dates: start: 1999, end: 2018
  3. SIMVASTATIN. [Concomitant]
     Active Substance: SIMVASTATIN
     Indication: BLOOD CHOLESTEROL ABNORMAL
     Dosage: UNK
     Dates: start: 1999, end: 2018
  4. VIAGRA [Suspect]
     Active Substance: SILDENAFIL CITRATE
     Indication: ERECTILE DYSFUNCTION
     Dosage: 100 MG, (3 TIMES A MONTH)
     Route: 048
     Dates: start: 20060314, end: 20150304
  5. VIAGRA [Suspect]
     Active Substance: SILDENAFIL CITRATE
     Indication: HYPERTENSION
  6. CIALIS [Suspect]
     Active Substance: TADALAFIL
     Indication: ERECTILE DYSFUNCTION
     Dosage: 100 MG, (3 TIMES A MONTH)
     Route: 048
     Dates: start: 20080211, end: 20080826

REACTIONS (1)
  - Malignant melanoma stage IV [Unknown]

NARRATIVE: CASE EVENT DATE: 20140401
